FAERS Safety Report 4930709-2 (Version None)
Quarter: 2006Q1

REPORT INFORMATION
  Report Type: 
  Country: None (occurrence: None)
  Receive Date: 20060227
  Receipt Date: 20060215
  Transmission Date: 20060701
  Serious: Yes (Other)
  Sender: FDA-Public Use
  Company Number: 2006024231

PATIENT
  Sex: Female
  Weight: 68.0396 kg

DRUGS (1)
  1. LIPITOR [Suspect]
     Indication: BLOOD CHOLESTEROL INCREASED
     Dosage: 20 MG (20 MG, 1 IN 1 D), ORAL
     Route: 048
     Dates: start: 20020101

REACTIONS (5)
  - ASTHENIA [None]
  - BODY HEIGHT DECREASED [None]
  - MYALGIA [None]
  - PAIN [None]
  - WRONG TECHNIQUE IN DRUG USAGE PROCESS [None]
